FAERS Safety Report 7587282-2 (Version None)
Quarter: 2011Q3

REPORT INFORMATION
  Report Type: 
  Country: None (occurrence: None)
  Receive Date: 20110701
  Receipt Date: 20110621
  Transmission Date: 20111222
  Serious: Yes (Hospitalization)
  Sender: FDA-Public Use
  Company Number: US-ELI_LILLY_AND_COMPANY-US201104005183

PATIENT
  Sex: Male

DRUGS (13)
  1. HUMALOG [Suspect]
     Indication: TYPE 2 DIABETES MELLITUS
     Dosage: UNK UNK, PRN
     Route: 058
  2. LIPITOR [Concomitant]
     Dosage: UNK
  3. ERGOCALCIFEROL [Concomitant]
     Dosage: UNK
  4. ZEMPLAR [Concomitant]
     Dosage: UNK
  5. TORSEMIDE [Concomitant]
     Dosage: UNK
  6. TRICOR [Concomitant]
     Dosage: UNK
  7. LANTUS [Concomitant]
     Dosage: UNK
  8. FOSINOPRIL SODIUM [Concomitant]
     Dosage: UNK
  9. LABETALOL HCL [Concomitant]
     Dosage: UNK
  10. COUMADIN [Concomitant]
     Dosage: UNK
  11. COZAAR [Concomitant]
     Dosage: UNK
  12. ARICEPT [Concomitant]
     Dosage: UNK
  13. TRIAMTERENE AND HYDROCHLOROTHIAZIDE [Concomitant]
     Dosage: UNK

REACTIONS (5)
  - DEMENTIA ALZHEIMER'S TYPE [None]
  - AMNESIA [None]
  - HYPOGLYCAEMIA [None]
  - DRUG ADMINISTRATION ERROR [None]
  - HYPOPHAGIA [None]
